FAERS Safety Report 17435720 (Version 1)
Quarter: 2020Q1

REPORT INFORMATION
  Report Type: Spontaneous
  Country: JP (occurrence: JP)
  Receive Date: 20200219
  Receipt Date: 20200219
  Transmission Date: 20200409
  Serious: Yes (Death, Hospitalization)
  Sender: FDA-Public Use
  Company Number: JP-ABBVIE-20K-087-3281452-00

PATIENT
  Age: 82 Year
  Sex: Male

DRUGS (1)
  1. MAVIRET [Suspect]
     Active Substance: GLECAPREVIR\PIBRENTASVIR
     Indication: CHRONIC HEPATITIS C
     Route: 048
     Dates: start: 20190824, end: 20190920

REACTIONS (2)
  - Endocarditis [Fatal]
  - Bilirubin conjugated increased [Unknown]

NARRATIVE: CASE EVENT DATE: 2019
